FAERS Safety Report 9782329 (Version 1)
Quarter: 2013Q4

REPORT INFORMATION
  Report Type: Spontaneous
  Country: DE (occurrence: DE)
  Receive Date: 20131226
  Receipt Date: 20131226
  Transmission Date: 20140711
  Serious: Yes (Congenital Anomaly, Other)
  Sender: FDA-Public Use
  Company Number: DE-ELI_LILLY_AND_COMPANY-DE201312006944

PATIENT
  Age: 0 Day
  Sex: 0

DRUGS (4)
  1. OLANZAPINE [Suspect]
     Indication: SCHIZOPHRENIA, PARANOID TYPE
     Dosage: 20 MG, QD
     Route: 064
  2. LORAZEPAM [Interacting]
     Indication: SCHIZOPHRENIA
     Dosage: 4 MG, QD
     Route: 064
  3. METHYLDOPA [Interacting]
     Indication: HYPERTENSION
     Dosage: 1 DF, UNKNOWN
     Route: 064
  4. AMOXICILLIN [Concomitant]
     Indication: BACTERIAL INFECTION
     Dosage: 1 DF, UNKNOWN
     Route: 064

REACTIONS (8)
  - Retrognathia [Unknown]
  - Hypotonia neonatal [Unknown]
  - Feeding disorder neonatal [Recovered/Resolved]
  - Myoglobin blood increased [Recovered/Resolved]
  - Blood creatine phosphokinase MB increased [Recovered/Resolved]
  - Blood lactate dehydrogenase increased [Recovered/Resolved]
  - Premature baby [Recovered/Resolved]
  - Foetal exposure during pregnancy [Recovered/Resolved]
